FAERS Safety Report 16826833 (Version 1)
Quarter: 2019Q3

REPORT INFORMATION
  Report Type: Spontaneous
  Country: US (occurrence: US)
  Receive Date: 20190919
  Receipt Date: 20190919
  Transmission Date: 20191005
  Serious: Yes (Other)
  Sender: FDA-Public Use
  Company Number: US-BRISTOL-MYERS SQUIBB COMPANY-BMS-2019-088961

PATIENT
  Sex: Male

DRUGS (2)
  1. LOSARTIN [Concomitant]
     Active Substance: LOSARTAN
     Indication: PRODUCT USED FOR UNKNOWN INDICATION
     Dosage: UNK
     Route: 065
  2. OPDIVO [Suspect]
     Active Substance: NIVOLUMAB
     Indication: HEPATOCELLULAR CARCINOMA
     Dosage: UNK UNK, Q2WK
     Route: 042
     Dates: start: 201801, end: 201810

REACTIONS (4)
  - Metastases to lung [Unknown]
  - Drug ineffective [Unknown]
  - Metastases to spine [Unknown]
  - Off label use [Unknown]
